FAERS Safety Report 14123674 (Version 1)
Quarter: 2017Q4

REPORT INFORMATION
  Report Type: Spontaneous
  Country: US (occurrence: US)
  Receive Date: 20171025
  Receipt Date: 20171025
  Transmission Date: 20180321
  Serious: No
  Sender: FDA-Public Use
  Company Number: None

PATIENT
  Age: 74 Year
  Sex: Male
  Weight: 96.75 kg

DRUGS (11)
  1. BRILINTA [Suspect]
     Active Substance: TICAGRELOR
  2. METFORMIN [Concomitant]
     Active Substance: METFORMIN HYDROCHLORIDE
  3. ATORVASTATIN [Concomitant]
     Active Substance: ATORVASTATIN
  4. MELATONIN [Concomitant]
     Active Substance: MELATONIN
  5. LUTEN [Concomitant]
  6. BABY ASPIRIN [Concomitant]
     Active Substance: ASPIRIN
  7. GABAPENTIN. [Concomitant]
     Active Substance: GABAPENTIN
  8. MULTI VIT [Concomitant]
  9. VITAMIN C [Concomitant]
     Active Substance: ASCORBIC ACID
  10. BREO ELLIPTA [Concomitant]
     Active Substance: FLUTICASONE FUROATE\VILANTEROL TRIFENATATE
  11. FLUOXETINE [Concomitant]
     Active Substance: FLUOXETINE HYDROCHLORIDE

REACTIONS (5)
  - Loss of consciousness [None]
  - Fall [None]
  - Throat tightness [None]
  - Dyspnoea [None]
  - Contusion [None]

NARRATIVE: CASE EVENT DATE: 20170927
